FAERS Safety Report 14295947 (Version 2)
Quarter: 2017Q4

REPORT INFORMATION
  Report Type: Report from Study
  Country: PK (occurrence: PK)
  Receive Date: 20171218
  Receipt Date: 20171220
  Transmission Date: 20180321
  Serious: Yes (Death, Other)
  Sender: FDA-Public Use
  Company Number: PHHY2017PK187848

PATIENT
  Age: 54 Year
  Sex: Female

DRUGS (1)
  1. FEMARA [Suspect]
     Active Substance: LETROZOLE
     Indication: BREAST CANCER
     Dosage: 2.5 MG, QD
     Route: 048
     Dates: start: 20150918

REACTIONS (6)
  - Chest pain [Fatal]
  - Chest discomfort [Fatal]
  - Dyspnoea [Fatal]
  - Metastases to liver [Unknown]
  - Cardiac arrest [Fatal]
  - Breast cancer stage III [Unknown]

NARRATIVE: CASE EVENT DATE: 201706
